FAERS Safety Report 10223608 (Version 2)
Quarter: 2014Q2

REPORT INFORMATION
  Report Type: Spontaneous
  Country: US (occurrence: US)
  Receive Date: 20140609
  Receipt Date: 20140609
  Transmission Date: 20141212
  Serious: No
  Sender: FDA-Public Use
  Company Number: US-DRREDDYS-USA/USA/13/0035452

PATIENT
  Age: 53 Year
  Sex: Female
  Weight: 68.03 kg

DRUGS (2)
  1. FEXOFENADINE HCL  OTC [Suspect]
     Indication: HYPERSENSITIVITY
     Route: 048
     Dates: start: 20131104, end: 20131104
  2. DIOVAN [Concomitant]
     Indication: BLOOD PRESSURE ABNORMAL
     Route: 065

REACTIONS (3)
  - Extra dose administered [Unknown]
  - Accidental exposure to product [Unknown]
  - No adverse event [Unknown]
